FAERS Safety Report 4575843-4 (Version None)
Quarter: 2005Q1

REPORT INFORMATION
  Report Type: 
  Country: None (occurrence: None)
  Receive Date: 20050201
  Receipt Date: 20050201
  Transmission Date: 20050727
  Serious: Yes (Death)
  Sender: FDA-Public Use
  Company Number: None

PATIENT
  Age: 23 Year
  Sex: Female
  Weight: 54.4316 kg

DRUGS (2)
  1. MOXIFLOXACIN  BAYER [Suspect]
     Indication: HEPATIC FAILURE
     Dosage: QD ORAL
     Route: 048
     Dates: start: 20030516, end: 20030519
  2. MOXIFLOXACIN  BAYER [Suspect]
     Indication: TOXIC EPIDERMAL NECROLYSIS
     Dosage: QD ORAL
     Route: 048
     Dates: start: 20030516, end: 20030519

REACTIONS (3)
  - HEPATIC FAILURE [None]
  - LIVER TRANSPLANT [None]
  - TOXIC EPIDERMAL NECROLYSIS [None]
